FAERS Safety Report 10457997 (Version 3)
Quarter: 2015Q1

REPORT INFORMATION
  Report Type: Report from Study
  Country: AR (occurrence: AR)
  Receive Date: 20140916
  Receipt Date: 20150112
  Transmission Date: 20150720
  Serious: Yes (Hospitalization)
  Sender: FDA-Public Use
  Company Number: PHHY2014AR119695

PATIENT
  Sex: Female

DRUGS (3)
  1. TOBI PODHALER [Suspect]
     Active Substance: TOBRAMYCIN
     Indication: CYSTIC FIBROSIS
     Dosage: 1 DF (NEBULIZATION), Q12H
     Route: 055
     Dates: end: 2013
  2. TOBI PODHALER [Suspect]
     Active Substance: TOBRAMYCIN
     Dosage: EVERY OTHER MONTH
     Route: 055
  3. PULMOSAN//BROMHEXINE HYDROCHLORIDE [Concomitant]
     Indication: PRODUCT USED FOR UNKNOWN INDICATION
     Dosage: UNK
     Route: 065

REACTIONS (3)
  - General physical health deterioration [Unknown]
  - Haemoptysis [Recovered/Resolved]
  - Increased bronchial secretion [Unknown]

NARRATIVE: CASE EVENT DATE: 2013
